FAERS Safety Report 5814220-2 (Version None)
Quarter: 2008Q3

REPORT INFORMATION
  Report Type: 
  Country: None (occurrence: None)
  Receive Date: 20080715
  Receipt Date: 20080701
  Transmission Date: 20090109
  Serious: Yes (Hospitalization)
  Sender: FDA-Public Use
  Company Number: 2008BI002870

PATIENT
  Sex: Female

DRUGS (2)
  1. AVONEX [Suspect]
     Indication: MULTIPLE SCLEROSIS
     Dosage: 30 UG;QW;IM
     Route: 030
     Dates: start: 20030108
  2. ANTICHOLINERGICS [Suspect]
     Indication: STRESS URINARY INCONTINENCE
     Dosage: 30 UG;QW;IM
     Route: 030
     Dates: start: 20030108

REACTIONS (1)
  - STRESS URINARY INCONTINENCE [None]
